FAERS Safety Report 12767059 (Version 5)
Quarter: 2016Q4

REPORT INFORMATION
  Report Type: Spontaneous
  Country: US (occurrence: US)
  Receive Date: 20160921
  Receipt Date: 20161108
  Transmission Date: 20170207
  Serious: Yes (Hospitalization)
  Sender: FDA-Public Use
  Company Number: US-ACTELION-A-NJ2016-142310

PATIENT
  Age: 50 Year
  Sex: Female

DRUGS (15)
  1. CEFAZOLIN [Concomitant]
     Active Substance: CEFAZOLIN
  2. DIPHENHYDRAMINE. [Concomitant]
     Active Substance: DIPHENHYDRAMINE
     Dosage: 25MG AT 8AM + 2PM; 50MG AT 8PM
     Dates: start: 20160226
  3. LASIX [Concomitant]
     Active Substance: FUROSEMIDE
  4. COUMADIN [Concomitant]
     Active Substance: WARFARIN SODIUM
  5. INSULIN GLARGINE [Concomitant]
     Active Substance: INSULIN GLARGINE
     Dosage: INJECT 5 UNITS DAILY IN MORNING
     Dates: start: 20160301
  6. POTASSIUM CHLORIDE. [Concomitant]
     Active Substance: POTASSIUM CHLORIDE
     Dosage: 40 MEQ, BID
  7. FUROSEMIDE. [Concomitant]
     Active Substance: FUROSEMIDE
     Dosage: 40MG; 1-2 TABS BID, PRN
  8. VELETRI [Suspect]
     Active Substance: EPOPROSTENOL
     Indication: PULMONARY ARTERIAL HYPERTENSION
     Dosage: 49 NG/KG, PER MIN
     Route: 042
     Dates: start: 20131022
  9. BUPROPION. [Concomitant]
     Active Substance: BUPROPION
     Dosage: 100 MG, QAM
     Dates: start: 20160511
  10. HYDROXYZINE [Concomitant]
     Active Substance: HYDROXYZINE\HYDROXYZINE HYDROCHLORIDE
     Dosage: 20MG QPM
  11. NPH INSULIN [Concomitant]
     Active Substance: INSULIN BEEF
  12. SPIRONOLACTONE. [Concomitant]
     Active Substance: SPIRONOLACTONE
     Dosage: 50 MG, BID
  13. SILDENAFIL. [Concomitant]
     Active Substance: SILDENAFIL
     Dosage: 40MG QAM, 25MG AT 2 PM, 25MG QPM
     Dates: start: 20130925
  14. TRACLEER [Concomitant]
     Active Substance: BOSENTAN
     Indication: PULMONARY ARTERIAL HYPERTENSION
     Dosage: 125 MG, BID
     Route: 048
     Dates: start: 20141201, end: 20160928
  15. INSULIN REGULAR [Concomitant]
     Active Substance: INSULIN NOS
     Dosage: SLIDING SCALE: 2 UNIT }150
     Dates: start: 20151210

REACTIONS (7)
  - Platelet count decreased [Recovering/Resolving]
  - Avulsion fracture [Recovering/Resolving]
  - Ligament sprain [Recovering/Resolving]
  - Immune thrombocytopenic purpura [Recovering/Resolving]
  - Lower limb fracture [Recovering/Resolving]
  - Fall [Unknown]
  - Limb injury [Recovering/Resolving]

NARRATIVE: CASE EVENT DATE: 201609
